FAERS Safety Report 8233278-7 (Version None)
Quarter: 2012Q1

REPORT INFORMATION
  Report Type: 
  Country: None (occurrence: None)
  Receive Date: 20120326
  Receipt Date: 20120314
  Transmission Date: 20120608
  Serious: Yes (Other)
  Sender: FDA-Public Use
  Company Number: US-ELI_LILLY_AND_COMPANY-US201203004141

PATIENT
  Age: 73 Year
  Sex: Female

DRUGS (1)
  1. FORTEO [Suspect]
     Indication: OSTEOPOROSIS
     Route: 065

REACTIONS (6)
  - HIP FRACTURE [None]
  - BACK PAIN [None]
  - GAIT DISTURBANCE [None]
  - BONE DISORDER [None]
  - CHEST PAIN [None]
  - INTENTIONAL DRUG MISUSE [None]
